FAERS Safety Report 4417276-7 (Version None)
Quarter: 2004Q3

REPORT INFORMATION
  Report Type: 
  Country: None (occurrence: None)
  Receive Date: 20040806
  Receipt Date: 20040727
  Transmission Date: 20050211
  Serious: Yes (Disabling, Other)
  Sender: FDA-Public Use
  Company Number: GB-GLAXOSMITHKLINE-B0340782A

PATIENT
  Age: 72 Year
  Sex: Male

DRUGS (13)
  1. AVODART [Suspect]
     Dosage: .5MG PER DAY
     Route: 048
  2. METFORMIN HCL [Concomitant]
     Route: 065
  3. ENALAPRIL MALEATE [Concomitant]
     Route: 065
  4. AMLODIPINE [Concomitant]
     Route: 065
  5. MESALAMINE [Concomitant]
     Route: 065
  6. TEGRETOL [Concomitant]
     Route: 065
  7. ASPIRIN [Concomitant]
     Route: 065
  8. TRIMETHOPRIM [Concomitant]
     Route: 065
  9. ATORVASTATIN CALCIUM [Concomitant]
     Route: 065
  10. CITALOPRAM [Concomitant]
     Route: 065
  11. LANSOPRAZOLE [Concomitant]
     Route: 065
  12. BECLOMETHASONE DIPROPIONATE [Concomitant]
  13. CETIRIZINE HCL [Concomitant]
     Route: 065

REACTIONS (2)
  - ASTHENIA [None]
  - HEMIPARESIS [None]
